FAERS Safety Report 12889641 (Version 1)
Quarter: 2016Q4

REPORT INFORMATION
  Report Type: Spontaneous
  Country: US (occurrence: US)
  Receive Date: 20161027
  Receipt Date: 20161027
  Transmission Date: 20170207
  Serious: Yes (Other)
  Sender: FDA-Public Use
  Company Number: US-BAYER-2016-206555

PATIENT
  Age: 29 Year
  Sex: Female

DRUGS (1)
  1. MIRENA [Suspect]
     Active Substance: LEVONORGESTREL
     Dosage: 20 MCG/24HR, CONT
     Route: 015
     Dates: start: 20120223, end: 20141203

REACTIONS (4)
  - Benign intracranial hypertension [None]
  - Headache [None]
  - Vision blurred [None]
  - Papilloedema [None]

NARRATIVE: CASE EVENT DATE: 20140929
